FAERS Safety Report 8688293 (Version 7)
Quarter: 2012Q4

REPORT INFORMATION
  Report Type: Report from Study
  Country: DE (occurrence: DE)
  Receive Date: 20120727
  Receipt Date: 20121011
  Transmission Date: 20130627
  Serious: Yes (Hospitalization)
  Sender: FDA-Public Use
  Company Number: DE-ROCHE-1093489

PATIENT
  Age: 58 Year
  Sex: Female
  Weight: 71 kg

DRUGS (3)
  1. AVASTIN [Suspect]
     Indication: OVARIAN CANCER
     Dosage: Date of last dose- 20/Jun/2012
     Route: 042
     Dates: start: 20120620, end: 20120620
  2. CARBOPLATIN [Suspect]
     Indication: OVARIAN CANCER
     Dosage: last dose: 20/Jun/2012
     Route: 042
     Dates: start: 20120620
  3. PACLITAXEL [Suspect]
     Indication: OVARIAN CANCER
     Dosage: last dose: 20/Jun/2012
     Route: 042
     Dates: start: 20120620

REACTIONS (2)
  - Paraneoplastic cerebellar degeneration [Recovered/Resolved]
  - Paraneoplastic cerebellar degeneration [Recovering/Resolving]
